FAERS Safety Report 15893878 (Version 1)
Quarter: 2019Q1

REPORT INFORMATION
  Report Type: Spontaneous
  Country: IT (occurrence: IT)
  Receive Date: 20190131
  Receipt Date: 20190131
  Transmission Date: 20190417
  Serious: Yes (Other)
  Sender: FDA-Public Use
  Company Number: IT-AUROBINDO-AUR-APL-2019-003566

PATIENT

DRUGS (1)
  1. QUETIAPINE FILM-COATED TABLET [Suspect]
     Active Substance: QUETIAPINE
     Indication: PRODUCT USED FOR UNKNOWN INDICATION
     Dosage: 1 GRAM TOTAL
     Route: 048
     Dates: start: 20181120, end: 20181120

REACTIONS (2)
  - Sopor [Recovering/Resolving]
  - Intentional self-injury [Recovering/Resolving]

NARRATIVE: CASE EVENT DATE: 20181120
